FAERS Safety Report 7265431-3 (Version None)
Quarter: 2011Q1

REPORT INFORMATION
  Report Type: 
  Country: None (occurrence: None)
  Receive Date: 20110131
  Receipt Date: 20110119
  Transmission Date: 20110831
  Serious: Yes (Other)
  Sender: FDA-Public Use
  Company Number: PHHY2011US02226

PATIENT
  Sex: Female

DRUGS (13)
  1. TEKTURNA [Suspect]
     Dosage: 300 MG, QD
     Route: 048
  2. RAMIPRIL [Concomitant]
  3. SIMVASTATIN [Concomitant]
     Dosage: 80 MG, QD
  4. CENTRUM [Concomitant]
     Dosage: 1 DF, QD
     Route: 048
  5. DIOVAN [Concomitant]
     Dosage: 160 MG, BID
  6. CLONIDINE [Concomitant]
     Dosage: 0.1 MG, TID
  7. COQ10 [Concomitant]
     Dosage: 100 MG, UNK
  8. ASPIRIN [Concomitant]
     Dosage: 81 MG, QD
  9. HUMULIN R [Concomitant]
     Dosage: 70/30, 42/32 UNITS DAILY
  10. CARVEDILOL [Concomitant]
     Dosage: 12.5 MG, BID
  11. VITAMIN D [Concomitant]
     Dosage: 50000 IU, QW
  12. CALCIUM [Concomitant]
     Dosage: 1500 MG, QD
  13. FUROSEMIDE [Concomitant]
     Dosage: 20 MG, QD
     Route: 048

REACTIONS (4)
  - FATIGUE [None]
  - FEELING ABNORMAL [None]
  - MOVEMENT DISORDER [None]
  - SPEECH DISORDER [None]
